FAERS Safety Report 8608129 (Version 4)
Quarter: 2014Q1

REPORT INFORMATION
  Report Type: Spontaneous
  Country: US (occurrence: US)
  Receive Date: 20120611
  Receipt Date: 20140123
  Transmission Date: 20141002
  Serious: Yes (Disabling, Other)
  Sender: FDA-Public Use
  Company Number: US-ASTRAZENECA-2012SE35350

PATIENT
  Age: 56 Year
  Sex: Female
  Weight: 63.5 kg

DRUGS (21)
  1. NEXIUM [Suspect]
     Indication: GASTROOESOPHAGEAL REFLUX DISEASE
     Route: 048
     Dates: start: 200902, end: 201105
  2. NEXIUM [Suspect]
     Indication: GASTROOESOPHAGEAL REFLUX DISEASE
     Route: 048
     Dates: start: 201305
  3. TUMS [Concomitant]
     Dosage: AS NEEDED
  4. HYZAAR [Concomitant]
     Indication: HYPERTENSION
     Dosage: 50/12.5  DAILY
  5. FELODIPIN [Concomitant]
     Indication: HYPERTENSION
  6. MULTIPLE VITAMIN [Concomitant]
  7. OMEGA 3 FISH OIL [Concomitant]
  8. VITAMIN D3 [Concomitant]
     Dosage: 400IN
  9. NIACIN [Concomitant]
     Dosage: 100 MG
  10. COQ 10 [Concomitant]
  11. B 12 COMPLEX WITH C [Concomitant]
  12. FOLIC ACID [Concomitant]
  13. ESTRADIOL [Concomitant]
     Indication: HORMONE REPLACEMENT THERAPY
  14. LOSARTAN [Concomitant]
     Dates: start: 201305
  15. FELODIPINE [Concomitant]
  16. HYDROCODONE-APAP [Concomitant]
     Dosage: 7.5/500 MG
     Dates: start: 20090213
  17. ZOLPIDEM TARTRATE [Concomitant]
     Dates: start: 20090302
  18. BENZONATATE [Concomitant]
     Dates: start: 20090511
  19. METHYLPREDNISOLONE [Concomitant]
     Dates: start: 20090626
  20. IBUPROFEN [Concomitant]
     Dates: start: 20101201
  21. CIPROFLOXACIN HCL [Concomitant]
     Dates: start: 20110531

REACTIONS (13)
  - Basal cell carcinoma [Unknown]
  - Joint injury [Recovered/Resolved]
  - Osteoporosis [Unknown]
  - Thoracic vertebral fracture [Unknown]
  - Gallbladder disorder [Unknown]
  - Multiple fractures [Unknown]
  - Rib fracture [Unknown]
  - Meniscus injury [Unknown]
  - Bone disorder [Unknown]
  - Bone pain [Unknown]
  - Arthritis [Unknown]
  - Intervertebral disc degeneration [Unknown]
  - Osteopenia [Unknown]
